FAERS Safety Report 9078432 (Version 1)
Quarter: 2013Q1

REPORT INFORMATION
  Report Type: Report from Study
  Country: US (occurrence: US)
  Receive Date: 20130130
  Receipt Date: 20130130
  Transmission Date: 20140127
  Serious: No
  Sender: FDA-Public Use
  Company Number: US-ABBOTT-12P-163-0974731-00

PATIENT
  Age: 47 Year
  Sex: Female

DRUGS (18)
  1. HUMIRA [Suspect]
     Indication: CROHN^S DISEASE
     Dosage: 160MG
     Dates: start: 20120715, end: 20120715
  2. HUMIRA [Suspect]
     Dosage: 80 MG
     Dates: start: 20120801, end: 20120801
  3. HUMIRA [Suspect]
  4. PREMPRO [Concomitant]
     Indication: MENOPAUSE
     Dosage: ONE PILL DAILY
  5. CELEBREX [Concomitant]
     Indication: FIBROMYALGIA
     Dosage: 200MG DAILY
  6. CELEBREX [Concomitant]
     Indication: ANKYLOSING SPONDYLITIS
  7. TOPROL [Concomitant]
     Indication: MITRAL VALVE PROLAPSE
     Dosage: 100MG DAILY
  8. VITAMIN B [Concomitant]
     Indication: PRODUCT USED FOR UNKNOWN INDICATION
     Dosage: ONCE A MONTH
  9. VITAMIN D [Concomitant]
     Indication: PRODUCT USED FOR UNKNOWN INDICATION
     Dosage: TWO TIMES A WEEK
  10. CLARITIN [Concomitant]
     Indication: HYPERSENSITIVITY
     Dosage: DAILY
  11. PERCOCET [Concomitant]
     Indication: PAIN
  12. DILAUDID [Concomitant]
     Indication: PAIN
  13. XANAX [Concomitant]
     Indication: ANXIETY
     Route: 048
  14. PHENERGAN [Concomitant]
     Indication: NAUSEA
  15. FLEXERIL [Concomitant]
     Indication: MUSCLE RELAXANT THERAPY
  16. SYNTHYROID [Concomitant]
     Indication: BASEDOW^S DISEASE
  17. NEXIUM [Concomitant]
     Indication: PROPHYLAXIS
     Dosage: ONE PILL DAILY
  18. NEXIUM [Concomitant]
     Indication: DYSPEPSIA

REACTIONS (15)
  - Decreased appetite [Not Recovered/Not Resolved]
  - Hypersensitivity [Not Recovered/Not Resolved]
  - Injection site pain [Not Recovered/Not Resolved]
  - Injection site rash [Recovered/Resolved]
  - Injection site bruising [Recovered/Resolved]
  - Injection site pain [Not Recovered/Not Resolved]
  - Chills [Not Recovered/Not Resolved]
  - Nasal congestion [Not Recovered/Not Resolved]
  - Pain [Not Recovered/Not Resolved]
  - Diarrhoea [Not Recovered/Not Resolved]
  - Feeling hot [Not Recovered/Not Resolved]
  - Nausea [Not Recovered/Not Resolved]
  - Injection site pain [Not Recovered/Not Resolved]
  - Fall [Not Recovered/Not Resolved]
  - Contusion [Not Recovered/Not Resolved]
